FAERS Safety Report 8839239 (Version 1)
Quarter: 2012Q4

REPORT INFORMATION
  Report Type: Spontaneous
  Country: US (occurrence: None)
  Receive Date: 20121011
  Receipt Date: 20121011
  Transmission Date: 20130627
  Serious: Yes (Hospitalization)
  Sender: FDA-Public Use
  Company Number: None

PATIENT
  Sex: Male
  Weight: 98.3 kg

DRUGS (5)
  1. AVASTIN [Suspect]
     Indication: GASTROESOPHAGEAL CANCER
  2. FOLFOX-6 [Suspect]
     Indication: GASTROESOPHAGEAL CANCER
  3. OXALIPLATIN [Suspect]
     Indication: GASTROESOPHAGEAL CANCER
  4. LEUCOVORIN [Suspect]
     Indication: GASTROESOPHAGEAL CANCER
  5. 5FU [Suspect]
     Indication: GASTROESOPHAGEAL CANCER

REACTIONS (3)
  - Clostridium test positive [None]
  - Colitis [None]
  - Pyrexia [None]
